FAERS Safety Report 7408788-2 (Version None)
Quarter: 2011Q2

REPORT INFORMATION
  Report Type: 
  Country: None (occurrence: None)
  Receive Date: 20110412
  Receipt Date: 20110402
  Transmission Date: 20111010
  Serious: Yes (Other)
  Sender: FDA-Public Use
  Company Number: US-AMGEN-QUU429132

PATIENT
  Age: 47 Year
  Sex: Female
  Weight: 71.5 kg

DRUGS (5)
  1. EPOGEN [Suspect]
     Indication: RENAL FAILURE CHRONIC
     Dosage: 20000 IU, 3 TIMES/WK
     Route: 058
     Dates: start: 20080801
  2. FOLIC ACID [Concomitant]
  3. RENAGEL [Concomitant]
  4. ISONIAZID [Concomitant]
     Dosage: UNK UNK, UNK
     Dates: start: 20080801, end: 20090101
  5. MULTI-VITAMINS [Concomitant]

REACTIONS (5)
  - NEUTRALISING ANTIBODIES POSITIVE [None]
  - ANAEMIA [None]
  - APLASIA PURE RED CELL [None]
  - ERYTHROID SERIES ABNORMAL [None]
  - LATENT TUBERCULOSIS [None]
